FAERS Safety Report 9632256 (Version 1)
Quarter: 2013Q4

REPORT INFORMATION
  Report Type: Spontaneous
  Country: FR (occurrence: FR)
  Receive Date: 20131018
  Receipt Date: 20131018
  Transmission Date: 20140711
  Serious: Yes (Death)
  Sender: FDA-Public Use
  Company Number: FR-SA-2013SA102277

PATIENT
  Age: 67 Year
  Sex: Male

DRUGS (2)
  1. EVOLTRA [Suspect]
     Indication: PRODUCT USED FOR UNKNOWN INDICATION
     Route: 042
     Dates: start: 20130409, end: 20130411
  2. ARACYTINE [Suspect]
     Indication: ACUTE MYELOID LEUKAEMIA
     Route: 042
     Dates: start: 20130409, end: 20130409

REACTIONS (3)
  - Aplasia [Fatal]
  - Sepsis [Fatal]
  - Jaundice [Fatal]
